FAERS Safety Report 5280487-5 (Version None)
Quarter: 2007Q1

REPORT INFORMATION
  Report Type: 
  Country: None (occurrence: None)
  Receive Date: 20070329
  Receipt Date: 20070321
  Transmission Date: 20070707
  Serious: Yes (Hospitalization)
  Sender: FDA-Public Use
  Company Number: US-MERCK-0703USA04146

PATIENT
  Age: 8 Year
  Sex: Female

DRUGS (4)
  1. SINGULAIR [Suspect]
     Indication: RHINITIS ALLERGIC
     Route: 048
  2. SINGULAIR [Suspect]
     Route: 048
  3. FLOVENT [Concomitant]
     Route: 065
  4. ALLERGENIC EXTRACT [Concomitant]
     Route: 065

REACTIONS (2)
  - DEHYDRATION [None]
  - VOMITING [None]
